FAERS Safety Report 20122758 (Version 1)
Quarter: 2021Q4

REPORT INFORMATION
  Report Type: Spontaneous
  Country: CN (occurrence: None)
  Receive Date: 20211128
  Receipt Date: 20211128
  Transmission Date: 20220304
  Serious: Yes (Other)
  Sender: FDA-Public Use
  Company Number: CN-ROCHE-2960825

PATIENT
  Sex: Female

DRUGS (16)
  1. HERCEPTIN [Suspect]
     Active Substance: TRASTUZUMAB
     Indication: Invasive ductal breast carcinoma
     Dosage: 8MG/KG, 6MG/KG
     Route: 065
     Dates: start: 20141121, end: 20151114
  2. HERCEPTIN [Suspect]
     Active Substance: TRASTUZUMAB
     Route: 065
     Dates: start: 20151210
  3. HERCEPTIN [Suspect]
     Active Substance: TRASTUZUMAB
     Route: 065
     Dates: start: 20200407, end: 20200822
  4. HERCEPTIN [Suspect]
     Active Substance: TRASTUZUMAB
     Dosage: 369/374/495MG
     Route: 065
     Dates: start: 20200922, end: 20210307
  5. HERCEPTIN [Suspect]
     Active Substance: TRASTUZUMAB
     Route: 065
     Dates: start: 20210407
  6. PERJETA [Suspect]
     Active Substance: PERTUZUMAB
     Indication: Invasive ductal breast carcinoma
     Dosage: 840MG/420MG
     Route: 042
     Dates: start: 20200407, end: 20200822
  7. PERJETA [Suspect]
     Active Substance: PERTUZUMAB
     Route: 042
     Dates: start: 20200922, end: 20210307
  8. PERJETA [Suspect]
     Active Substance: PERTUZUMAB
     Route: 042
     Dates: start: 20210407
  9. XELODA [Suspect]
     Active Substance: CAPECITABINE
     Indication: Invasive ductal breast carcinoma
     Route: 048
     Dates: start: 20151210
  10. GEMCITABINE [Concomitant]
     Active Substance: GEMCITABINE
     Indication: Invasive ductal breast carcinoma
     Dates: start: 20151210
  11. LAPATINIB [Concomitant]
     Active Substance: LAPATINIB
     Indication: Invasive ductal breast carcinoma
     Dates: start: 20160104
  12. LAPATINIB [Concomitant]
     Active Substance: LAPATINIB
     Dates: start: 20161103
  13. TEGAFUR [Concomitant]
     Active Substance: TEGAFUR
     Indication: Invasive ductal breast carcinoma
     Dates: start: 20160415
  14. TEGAFUR [Concomitant]
     Active Substance: TEGAFUR
     Dosage: 80MG/60MG
     Dates: start: 20161103
  15. DOCETAXEL [Concomitant]
     Active Substance: DOCETAXEL
     Indication: Invasive ductal breast carcinoma
     Dates: start: 20200407
  16. IBANDRONIC ACID [Concomitant]
     Active Substance: IBANDRONIC ACID
     Indication: Invasive ductal breast carcinoma

REACTIONS (2)
  - Myelosuppression [Unknown]
  - Palmar-plantar erythrodysaesthesia syndrome [Unknown]
